FAERS Safety Report 14923793 (Version 1)
Quarter: 2018Q2

REPORT INFORMATION
  Report Type: Other
  Country: US (occurrence: US)
  Receive Date: 20180522
  Receipt Date: 20180522
  Transmission Date: 20180711
  Serious: Yes (Life-Threatening, Other)
  Sender: FDA-Public Use
  Company Number: US-B. BRAUN MEDICAL INC.-2048229

PATIENT
  Age: 16 Year
  Sex: Male

DRUGS (3)
  1. AMIODARONE HYDROCHLORIDE. [Suspect]
     Active Substance: AMIODARONE HYDROCHLORIDE
  2. LIDOCAINE HYDROCHLORIDE AND DEXTROSE [Suspect]
     Active Substance: DEXTROSE\LIDOCAINE HYDROCHLORIDE
     Indication: VENTRICULAR FIBRILLATION
  3. ESMOLOL [Suspect]
     Active Substance: ESMOLOL HYDROCHLORIDE

REACTIONS (1)
  - Drug ineffective [Unknown]
